FAERS Safety Report 6666967-6 (Version None)
Quarter: 2010Q2

REPORT INFORMATION
  Report Type: 
  Country: None (occurrence: None)
  Receive Date: 20100405
  Receipt Date: 20100323
  Transmission Date: 20101027
  Serious: Yes (Other)
  Sender: FDA-Public Use
  Company Number: US-CELGENEUS-163-21880-10030212

PATIENT
  Sex: Male

DRUGS (5)
  1. REVLIMID [Suspect]
     Indication: MULTIPLE MYELOMA
     Route: 048
     Dates: start: 20090714, end: 20090101
  2. REVLIMID [Suspect]
     Route: 048
     Dates: start: 20090603, end: 20090728
  3. REVLIMID [Suspect]
     Route: 048
     Dates: start: 20100211
  4. VELCADE [Concomitant]
     Indication: MULTIPLE MYELOMA
     Route: 051
     Dates: start: 20090601, end: 20090923
  5. DEXAMETHASONE [Concomitant]
     Indication: MULTIPLE MYELOMA
     Route: 048
     Dates: start: 20090601, end: 20090923

REACTIONS (2)
  - JOINT INJURY [None]
  - ROTATOR CUFF SYNDROME [None]
